FAERS Safety Report 7363362-1 (Version None)
Quarter: 2011Q1

REPORT INFORMATION
  Report Type: 
  Country: None (occurrence: None)
  Receive Date: 20110321
  Receipt Date: 20110311
  Transmission Date: 20110831
  Serious: Yes (Hospitalization)
  Sender: FDA-Public Use
  Company Number: US-ASTRAZENECA-2007UW19487

PATIENT
  Age: 89 Year
  Sex: Female
  Weight: 59.9 kg

DRUGS (5)
  1. NEXIUM [Suspect]
     Indication: GASTROOESOPHAGEAL REFLUX DISEASE
     Route: 048
  2. NEXIUM [Suspect]
     Indication: COUGH
     Route: 048
  3. HEMALOL [Concomitant]
  4. EVISTA [Concomitant]
  5. MULTI-VITAMINS [Concomitant]

REACTIONS (6)
  - DRUG INEFFECTIVE FOR UNAPPROVED INDICATION [None]
  - GASTRIC OPERATION [None]
  - CONSTIPATION [None]
  - SNEEZING [None]
  - COUGH [None]
  - HEARING IMPAIRED [None]
